FAERS Safety Report 21433513 (Version 1)
Quarter: 2022Q4

REPORT INFORMATION
  Report Type: Spontaneous
  Country: ES (occurrence: ES)
  Receive Date: 20221010
  Receipt Date: 20221010
  Transmission Date: 20230113
  Serious: Yes (Other)
  Sender: FDA-Public Use
  Company Number: None

PATIENT
  Age: 58 Year
  Sex: Male

DRUGS (1)
  1. ADALIMUMAB [Suspect]
     Active Substance: ADALIMUMAB
     Indication: Crohn^s disease
     Dosage: 40MG EVERY 14 DAYS
     Route: 058
     Dates: start: 20220712

REACTIONS (1)
  - Myopia [Not Recovered/Not Resolved]

NARRATIVE: CASE EVENT DATE: 20220824
